FAERS Safety Report 7206042-5 (Version None)
Quarter: 2010Q4

REPORT INFORMATION
  Report Type: 
  Country: None (occurrence: None)
  Receive Date: 20101229
  Receipt Date: 20101229
  Transmission Date: 20110411
  Serious: Yes (Other)
  Sender: FDA-Public Use
  Company Number: None

PATIENT
  Sex: Female
  Weight: 72.5755 kg

DRUGS (1)
  1. QUICK SET PARADIGM MEDTRONIC [Suspect]
     Indication: TYPE 1 DIABETES MELLITUS
     Dates: start: 20101226, end: 20101226

REACTIONS (5)
  - DEVICE CONNECTION ISSUE [None]
  - DEVICE LEAKAGE [None]
  - DIABETIC KETOACIDOSIS [None]
  - INCORRECT DOSE ADMINISTERED [None]
  - MEDICATION ERROR [None]
